FAERS Safety Report 15313604 (Version 2)
Quarter: 2018Q3

REPORT INFORMATION
  Report Type: Spontaneous
  Country: US (occurrence: US)
  Receive Date: 20180824
  Receipt Date: 20180831
  Transmission Date: 20181010
  Serious: Yes (Hospitalization, Disabling, Other)
  Sender: FDA-Public Use
  Company Number: US-DRREDDYS-USA/USA/18/0103247

PATIENT
  Age: 10 Year
  Sex: Male
  Weight: 20 kg

DRUGS (1)
  1. ALLOPURINOL. [Suspect]
     Active Substance: ALLOPURINOL
     Indication: HYPOXANTHINE-GUANINE PHOSPHORIBOSYL TRANSFERASE DEFICIENCY
     Dosage: 10 MG/KG
     Route: 065

REACTIONS (10)
  - Anaemia [Unknown]
  - Blood homocysteine increased [Unknown]
  - Aspiration [Unknown]
  - Thrombosis [Unknown]
  - Nephrocalcinosis [Recovering/Resolving]
  - Gastrooesophageal reflux disease [Unknown]
  - Overdose [Unknown]
  - Stag horn calculus [Recovered/Resolved]
  - Impaired gastric emptying [Unknown]
  - Factor V Leiden mutation [Unknown]
